FAERS Safety Report 14058231 (Version 2)
Quarter: 2017Q4

REPORT INFORMATION
  Report Type: Other
  Country: US (occurrence: US)
  Receive Date: 20171006
  Receipt Date: 20171224
  Transmission Date: 20180321
  Serious: Yes (Hospitalization)
  Sender: FDA-Public Use
  Company Number: US-INTERCEPT-PMOCA2017001003

PATIENT

DRUGS (3)
  1. OCALIVA [Suspect]
     Active Substance: OBETICHOLIC ACID
     Indication: BILIARY CIRRHOSIS PRIMARY
     Dosage: 5 MG, QD
     Route: 048
     Dates: start: 20170716
  2. URSODIOL. [Concomitant]
     Active Substance: URSODIOL
     Dosage: UNK
     Dates: start: 2004
  3. OXYCODONE [Concomitant]
     Active Substance: OXYCODONE
     Dosage: UNK

REACTIONS (13)
  - Abdominal distension [Unknown]
  - Blood albumin decreased [Unknown]
  - Constipation [Unknown]
  - Platelet count decreased [Unknown]
  - Drug dose omission [Recovered/Resolved]
  - General physical health deterioration [Unknown]
  - Loss of consciousness [Unknown]
  - Haematochezia [Unknown]
  - Tremor [Unknown]
  - Abdominal pain [Unknown]
  - Blood alkaline phosphatase increased [Unknown]
  - Blood bilirubin increased [Unknown]
  - Pruritus [Unknown]

NARRATIVE: CASE EVENT DATE: 2017
